FAERS Safety Report 5681112-1 (Version None)
Quarter: 2008Q1

REPORT INFORMATION
  Report Type: 
  Country: None (occurrence: None)
  Receive Date: 20080325
  Receipt Date: 20080314
  Transmission Date: 20080703
  Serious: Yes (Life-Threatening)
  Sender: FDA-Public Use
  Company Number: 2008AL001755

PATIENT
  Age: 45 Year
  Sex: Male

DRUGS (3)
  1. FLUOXETINE [Suspect]
     Dosage: 20 MG
     Dates: start: 20080218, end: 20080227
  2. DICLOFENAC SODIUM [Concomitant]
  3. FLUCLOXACILLIN [Concomitant]

REACTIONS (2)
  - FEELING ABNORMAL [None]
  - SUICIDAL IDEATION [None]
